FAERS Safety Report 18550302 (Version 1)
Quarter: 2020Q4

REPORT INFORMATION
  Report Type: Spontaneous
  Country: US (occurrence: US)
  Receive Date: 20201126
  Receipt Date: 20201126
  Transmission Date: 20210114
  Serious: Yes (Other)
  Sender: FDA-Public Use
  Company Number: US-009507513-2011USA014775

PATIENT
  Age: 41 Year
  Sex: Female
  Weight: 100.7 kg

DRUGS (12)
  1. NEXIUM [Suspect]
     Active Substance: ESOMEPRAZOLE MAGNESIUM
     Dosage: UNK
     Route: 048
  2. MIRALAX [Concomitant]
     Active Substance: POLYETHYLENE GLYCOL 3350
     Dosage: 17 MILLIGRAM, QD
     Route: 048
  3. FERROUS SULFATE. [Concomitant]
     Active Substance: FERROUS SULFATE
     Dosage: 325 MILLIGRAM, QD
     Route: 048
  4. AMITRIPTYLINE HYDROCHLORIDE. [Concomitant]
     Active Substance: AMITRIPTYLINE HYDROCHLORIDE
     Dosage: 25 MILLIGRAM, QD
     Route: 048
  5. KEPPRA [Concomitant]
     Active Substance: LEVETIRACETAM
     Dosage: 1000 MG, QD
     Route: 048
  6. VISTARIL [Concomitant]
     Active Substance: HYDROXYZINE PAMOATE
     Dosage: 3 DOSAGE FORM, QD
     Route: 048
  7. PRINIVIL [Suspect]
     Active Substance: LISINOPRIL
     Dosage: 10 MILLIGRAM, QD
     Route: 048
  8. EXCEDRIN [Concomitant]
     Active Substance: ACETAMINOPHEN\ASPIRIN\CAFFEINE
     Dosage: UNK, PRN
  9. TEGRETOL [Concomitant]
     Active Substance: CARBAMAZEPINE
     Dosage: 4 DOSAGE FORM, QD
     Route: 048
  10. OMEPRAZOLE. [Suspect]
     Active Substance: OMEPRAZOLE
     Dosage: 40 MILLIGRAM, QD
     Route: 048
  11. DILANTIN [Concomitant]
     Active Substance: PHENYTOIN
     Dosage: 3 IN THE MORNING AND 2 AT NIGHT
  12. OMEPRAZOLE. [Suspect]
     Active Substance: OMEPRAZOLE
     Dosage: 20 MILLIGRAM, QD
     Route: 048

REACTIONS (24)
  - Epilepsy [Unknown]
  - Hypertension [Unknown]
  - Hyperglycaemia [Unknown]
  - Chest pain [Unknown]
  - Constipation [Unknown]
  - Hypokalaemia [Unknown]
  - Rectal haemorrhage [Unknown]
  - Anorectal discomfort [Unknown]
  - Gingival erythema [Unknown]
  - Tooth disorder [Unknown]
  - Headache [Unknown]
  - Iron deficiency anaemia [Unknown]
  - Migraine [Unknown]
  - Fatigue [Unknown]
  - Dizziness [Unknown]
  - Menstruation irregular [Unknown]
  - Menorrhagia [Unknown]
  - Electrocardiogram QT prolonged [Unknown]
  - Dental caries [Unknown]
  - Seizure [Unknown]
  - Gastrooesophageal reflux disease [Unknown]
  - Somnolence [Unknown]
  - Haemorrhoids [Unknown]
  - Product dose omission issue [Unknown]

NARRATIVE: CASE EVENT DATE: 2011
